FAERS Safety Report 7034377-8 (Version None)
Quarter: 2010Q4

REPORT INFORMATION
  Report Type: 
  Country: None (occurrence: None)
  Receive Date: 20101008
  Receipt Date: 20100930
  Transmission Date: 20110411
  Serious: Yes (Hospitalization, Other)
  Sender: FDA-Public Use
  Company Number: US-JNJFOC-20101000441

PATIENT
  Sex: Female
  Weight: 63.5 kg

DRUGS (14)
  1. FENTANYL-100 [Suspect]
     Indication: PAIN
     Route: 062
  2. FENTANYL-100 [Suspect]
     Indication: FIBROMYALGIA
     Route: 062
  3. FENTANYL-100 [Suspect]
     Route: 062
  4. FENTANYL-100 [Suspect]
     Route: 062
  5. DURAGESIC-100 [Suspect]
     Indication: PAIN
     Dosage: NDC#50458-093-05
     Route: 062
  6. DURAGESIC-100 [Suspect]
     Indication: FIBROMYALGIA
     Dosage: NDC#50458-093-05
     Route: 062
  7. FENTANYL CITRATE [Suspect]
     Indication: PAIN
     Route: 062
  8. FENTANYL CITRATE [Suspect]
     Indication: FIBROMYALGIA
     Route: 062
  9. UNKNOWN MEDICATION [Concomitant]
     Indication: HORMONE LEVEL ABNORMAL
     Route: 048
  10. NEURONTIN [Concomitant]
     Indication: PAIN
     Route: 048
  11. SIMVASTATIN [Concomitant]
     Indication: BLOOD CHOLESTEROL INCREASED
     Route: 048
  12. SIMVASTATIN [Concomitant]
     Route: 048
  13. PAXIL [Concomitant]
     Indication: DEPRESSION
     Route: 048
  14. SOMA [Concomitant]
     Indication: MUSCLE RELAXANT THERAPY
     Route: 048

REACTIONS (12)
  - BIPOLAR DISORDER [None]
  - FATIGUE [None]
  - HYPERSOMNIA [None]
  - INADEQUATE ANALGESIA [None]
  - LOGORRHOEA [None]
  - PAIN [None]
  - PRODUCT ADHESION ISSUE [None]
  - PRODUCT QUALITY ISSUE [None]
  - PSYCHOMOTOR HYPERACTIVITY [None]
  - RESTLESSNESS [None]
  - THERAPEUTIC RESPONSE DECREASED [None]
  - VAGINOPLASTY [None]
